FAERS Safety Report 7048743-8 (Version None)
Quarter: 2010Q4

REPORT INFORMATION
  Report Type: 
  Country: None (occurrence: None)
  Receive Date: 20101018
  Receipt Date: 20101008
  Transmission Date: 20110411
  Serious: No
  Sender: FDA-Public Use
  Company Number: US-BIOGENIDEC-2010BI035054

PATIENT
  Age: 56 Year
  Sex: Male

DRUGS (2)
  1. AVONEX [Suspect]
     Indication: MULTIPLE SCLEROSIS
     Route: 030
     Dates: start: 19990501, end: 20090901
  2. AVONEX [Suspect]
     Route: 030
     Dates: start: 20091101

REACTIONS (3)
  - EMOTIONAL DISTRESS [None]
  - INFECTIVE MYOSITIS [None]
  - TEMPERATURE INTOLERANCE [None]
